FAERS Safety Report 4506947-X (Version None)
Quarter: 2004Q4

REPORT INFORMATION
  Report Type: 
  Country: None (occurrence: None)
  Receive Date: 20041117
  Receipt Date: 20020501
  Transmission Date: 20050328
  Serious: Yes (Death, Hospitalization)
  Sender: FDA-Public Use
  Company Number: 3633

PATIENT
  Sex: Male

DRUGS (10)
  1. ATRACURIUM BESYLATE [Suspect]
     Indication: INTUBATION
     Dosage: 500 MCG/KG ONCE
     Route: 042
     Dates: start: 20000304, end: 20000304
  2. DIAMORPHINE [Concomitant]
  3. DOPAMINE HCL [Concomitant]
  4. BERACTANT [Concomitant]
  5. BENZYLPENICILLIN [Concomitant]
  6. GENTAMICIN [Concomitant]
  7. MENADIONE [Concomitant]
  8. ATROPINE [Concomitant]
  9. SODIUM BICARBONATE [Concomitant]
  10. NEOSTIGMINE [Concomitant]

REACTIONS (13)
  - BLOOD PRESSURE DECREASED [None]
  - BRADYCARDIA NEONATAL [None]
  - CARDIO-RESPIRATORY ARREST NEONATAL [None]
  - DRUG INEFFECTIVE [None]
  - HAEMOGLOBIN DECREASED [None]
  - INCREASED BRONCHIAL SECRETION [None]
  - INTRAVENTRICULAR HAEMORRHAGE NEONATAL [None]
  - MUSCLE RIGIDITY [None]
  - NEONATAL DISORDER [None]
  - OXYGEN SATURATION DECREASED [None]
  - RENAL FAILURE NEONATAL [None]
  - RESPIRATORY DISORDER NEONATAL [None]
  - VENTRICULAR DYSFUNCTION [None]
